FAERS Safety Report 5416139-8 (Version None)
Quarter: 2007Q3

REPORT INFORMATION
  Report Type: 
  Country: None (occurrence: None)
  Receive Date: 20070718
  Receipt Date: 20070315
  Transmission Date: 20080115
  Serious: Yes (Other)
  Sender: FDA-Public Use
  Company Number: 2007021029

PATIENT
  Age: 76 Year
  Sex: Male
  Weight: 77.1 kg

DRUGS (2)
  1. CELEBREX [Suspect]
     Indication: ARTHRITIS
     Dosage: 200 MG (200 MG,1 IN 1 D); 400 MG(200 MG,2 IN 1 D)
     Dates: start: 19990324, end: 19990616
  2. CELEBREX [Suspect]
     Indication: ARTHRITIS
     Dosage: 200 MG (200 MG,1 IN 1 D); 400 MG(200 MG,2 IN 1 D)
     Dates: start: 19990617

REACTIONS (1)
  - MYOCARDIAL INFARCTION [None]
